FAERS Safety Report 5131665-7 (Version None)
Quarter: 2006Q4

REPORT INFORMATION
  Report Type: 
  Country: None (occurrence: None)
  Receive Date: 20061020
  Receipt Date: 20060911
  Transmission Date: 20070319
  Serious: Yes (Death, Hospitalization)
  Sender: FDA-Public Use
  Company Number: US-BRISTOL-MYERS SQUIBB COMPANY-13504899

PATIENT
  Age: 81 Year
  Sex: Male

DRUGS (3)
  1. MEGACE [Suspect]
     Indication: LUNG CANCER METASTATIC
     Route: 048
     Dates: start: 20060807, end: 20060830
  2. CARBOPLATIN [Concomitant]
     Route: 042
  3. VEPESID [Concomitant]

REACTIONS (3)
  - ASTHMA [None]
  - LUNG CANCER METASTATIC [None]
  - MALIGNANT NEOPLASM PROGRESSION [None]
